FAERS Safety Report 9458052 (Version 3)
Quarter: 2013Q3

REPORT INFORMATION
  Report Type: Spontaneous
  Country: US (occurrence: US)
  Receive Date: 20130814
  Receipt Date: 20130926
  Transmission Date: 20140515
  Serious: Yes (Death)
  Sender: FDA-Public Use
  Company Number: US-JNJFOC-20130803933

PATIENT
  Age: 83 Year
  Sex: Female
  Weight: 61.24 kg

DRUGS (40)
  1. HALDOL [Suspect]
     Indication: HALLUCINATION
     Route: 048
     Dates: start: 20130705, end: 20130705
  2. HALDOL [Suspect]
     Indication: HALLUCINATION
     Route: 048
  3. HALDOL [Suspect]
     Indication: HALLUCINATION
     Route: 030
     Dates: start: 20130705, end: 20130705
  4. HALDOL [Suspect]
     Indication: HALLUCINATION
     Route: 030
  5. DICYCLOMINE [Concomitant]
     Indication: NAUSEA
     Route: 048
  6. TYLENOL [Concomitant]
     Indication: PAIN
     Route: 048
  7. AMIODARONE [Concomitant]
     Indication: CARDIAC DISORDER
     Route: 048
  8. AMIODARONE [Concomitant]
     Indication: CARDIAC DISORDER
     Route: 048
  9. PAXIL [Concomitant]
     Indication: ANXIETY
     Dosage: USED SINCE 24 YEARS
     Route: 048
  10. ONDANSETRON [Concomitant]
     Indication: PRODUCT USED FOR UNKNOWN INDICATION
     Route: 048
  11. LOPRESSOR [Concomitant]
     Indication: CARDIAC DISORDER
     Route: 048
  12. LOPRESSOR [Concomitant]
     Indication: HYPERTENSION
     Route: 048
  13. LOPRESSOR [Concomitant]
     Indication: HEART RATE
     Route: 048
  14. COREG [Concomitant]
     Indication: CARDIAC DISORDER
     Dosage: USED SINCE 24 YEARS
     Route: 048
     Dates: start: 2011
  15. COREG [Concomitant]
     Indication: ATRIAL FIBRILLATION
     Dosage: USED SINCE 24 YEARS
     Route: 048
     Dates: start: 2011
  16. DIGOXIN [Concomitant]
     Indication: HYPERTENSION
     Route: 042
     Dates: start: 201307
  17. DIGOXIN [Concomitant]
     Indication: HEART RATE
     Route: 042
     Dates: start: 201307
  18. SENSIPAR [Concomitant]
     Indication: PARATHYROID DISORDER
     Route: 048
  19. DEXTROSE [Concomitant]
     Indication: PARATHYROID DISORDER
     Route: 042
  20. DEXTROSE [Concomitant]
     Indication: PARATHYROID DISORDER
     Route: 042
  21. DEXTROSE [Concomitant]
     Indication: PARATHYROID DISORDER
     Route: 042
  22. ASPIRIN [Concomitant]
     Indication: ANTICOAGULANT THERAPY
     Route: 048
  23. PEPCID [Concomitant]
     Indication: GASTRIC DISORDER
     Route: 048
  24. PRILOSEC [Concomitant]
     Indication: GASTRIC DISORDER
     Dosage: USED FOR 24 YEARS
     Route: 048
  25. ATARAX [Concomitant]
     Indication: PRURITUS
     Route: 048
  26. POTASSIUM CHLORIDE [Concomitant]
     Indication: BLOOD POTASSIUM DECREASED
     Route: 048
  27. ROBITUSSIN (DEXTROMETHORPHAN) [Concomitant]
     Indication: COUGH
     Route: 048
  28. MAGNESIUM SULFATE [Concomitant]
     Indication: BLOOD MAGNESIUM DECREASED
     Route: 065
  29. WARFARIN [Concomitant]
  30. CARAFATE [Concomitant]
     Indication: ANTICOAGULANT THERAPY
     Route: 048
  31. VANCOMYCIN [Concomitant]
     Indication: CLOSTRIDIUM DIFFICILE INFECTION
     Route: 048
  32. VANCOMYCIN [Concomitant]
     Indication: CLOSTRIDIUM DIFFICILE INFECTION
     Route: 048
  33. VANCOMYCIN [Concomitant]
     Indication: GASTRIC DISORDER
     Route: 048
  34. VANCOMYCIN [Concomitant]
     Indication: GASTRIC DISORDER
     Route: 048
  35. FLORASTOR [Concomitant]
     Indication: CLOSTRIDIUM DIFFICILE INFECTION
     Route: 048
  36. HEPARIN [Concomitant]
     Indication: ANTICOAGULANT THERAPY
     Route: 065
  37. LOPRESSOR [Concomitant]
     Indication: CARDIAC DISORDER
     Route: 042
  38. PHYTONADIONE [Concomitant]
     Indication: CARDIAC DISORDER
     Dosage: STARTED ON 27-JUN AN UNSPECIFIED YEAR
     Route: 048
  39. DUONEB [Concomitant]
     Indication: RESPIRATORY DISORDER
     Dosage: 2.5 (UNSPECIFIED UNITS) INHALATION
     Route: 055
  40. BENTYL [Concomitant]
     Route: 065

REACTIONS (3)
  - Cardiac failure [Fatal]
  - Medical device complication [Unknown]
  - Off label use [Unknown]
